FAERS Safety Report 5625449-0 (Version None)
Quarter: 2008Q1

REPORT INFORMATION
  Report Type: 
  Country: None (occurrence: None)
  Receive Date: 20080211
  Receipt Date: 20080201
  Transmission Date: 20080703
  Serious: Yes (Other)
  Sender: FDA-Public Use
  Company Number: 2008SP002692

PATIENT
  Sex: Male

DRUGS (1)
  1. CORICIDIN COUGH + COLD [Suspect]
     Indication: INTENTIONAL OVERDOSE
     Dosage: 14 DF;QD;PO
     Route: 048

REACTIONS (1)
  - DRUG ABUSE [None]
